FAERS Safety Report 6124678-X (Version None)
Quarter: 2009Q1

REPORT INFORMATION
  Report Type: 
  Country: None (occurrence: None)
  Receive Date: 20090319
  Receipt Date: 20090303
  Transmission Date: 20090719
  Serious: Yes (Hospitalization, Other)
  Sender: FDA-Public Use
  Company Number: UA-PFIZER INC-2007049657

PATIENT

DRUGS (6)
  1. GABAPENTIN [Suspect]
     Indication: DIABETIC NEUROPATHY
     Dosage: 300 MG, 3X/DAY
     Route: 048
     Dates: start: 20070523, end: 20070613
  2. GABAPENTIN [Suspect]
     Indication: PAIN
  3. ALPHA LIPOIC ACID [Suspect]
     Dosage: 600 MG, 1X/DAY
     Route: 048
     Dates: start: 20070523, end: 20070613
  4. MILGAMMA [Concomitant]
     Route: 048
     Dates: start: 20070523
  5. NOVORAPID [Concomitant]
     Dosage: 26 IU,DAILY
     Route: 058
     Dates: start: 20050101
  6. LANTUS [Concomitant]
     Route: 058
     Dates: start: 20050101

REACTIONS (4)
  - BRAIN CONTUSION [None]
  - HALLUCINATION, AUDITORY [None]
  - LOWER LIMB FRACTURE [None]
  - SUICIDE ATTEMPT [None]
